FAERS Safety Report 9030637 (Version 2)
Quarter: 2013Q2

REPORT INFORMATION
  Report Type: Spontaneous
  Country: IT (occurrence: IT)
  Receive Date: 20130123
  Receipt Date: 20130501
  Transmission Date: 20140414
  Serious: Yes (Other)
  Sender: FDA-Public Use
  Company Number: IT-B.I. PHARMACEUTICALS,INC./RIDGEFIELD-2013-IT-00029IT

PATIENT
  Age: 76 Year
  Sex: Female
  Weight: 70 kg

DRUGS (3)
  1. MOBIC [Suspect]
     Indication: ARTHRALGIA
     Dosage: 1 POSOLOGIC UNIT DAILY
     Route: 048
     Dates: start: 20121203, end: 20121208
  2. LOSARTAN POTASSIUM/HYDROCHLOROTHIAZIDE [Concomitant]
  3. LEVOPRAID [Concomitant]

REACTIONS (1)
  - Hypertensive crisis [Recovered/Resolved]
